FAERS Safety Report 4727778-1 (Version None)
Quarter: 2005Q3

REPORT INFORMATION
  Report Type: 
  Country: None (occurrence: None)
  Receive Date: 20050727
  Receipt Date: 20050715
  Transmission Date: 20060218
  Serious: Yes (Death)
  Sender: FDA-Public Use
  Company Number: MK200507-0171-1

PATIENT
  Age: 36 Year
  Sex: Male
  Weight: 65 kg

DRUGS (3)
  1. METHADOSE [Suspect]
     Indication: DRUG ABUSER
  2. COCAINE [Suspect]
     Indication: DRUG ABUSER
  3. DIAZEPAM [Concomitant]

REACTIONS (8)
  - ASPIRATION [None]
  - DENTAL CARIES [None]
  - HEPATITIS C [None]
  - INFLAMMATION [None]
  - JAW FRACTURE [None]
  - OSTEOMYELITIS [None]
  - POISONING [None]
  - TOOTH EXTRACTION [None]
